FAERS Safety Report 20997942 (Version 1)
Quarter: 2022Q2

REPORT INFORMATION
  Report Type: Spontaneous
  Country: US (occurrence: None)
  Receive Date: 20220623
  Receipt Date: 20220623
  Transmission Date: 20220721
  Serious: Yes (Hospitalization)
  Sender: FDA-Public Use
  Company Number: None

PATIENT
  Age: 79 Year
  Sex: Female
  Weight: 60.3 kg

DRUGS (3)
  1. METHOTREXATE [Suspect]
     Active Substance: METHOTREXATE
     Dates: end: 20220528
  2. RITUXIMAB [Suspect]
     Active Substance: RITUXIMAB
     Dates: end: 20220527
  3. LEUCOVORIN CALCIUM [Suspect]
     Active Substance: LEUCOVORIN CALCIUM
     Dates: end: 20220602

REACTIONS (9)
  - Hypokalaemia [None]
  - Hyponatraemia [None]
  - Dysphagia [None]
  - Encephalopathy [None]
  - Lymphocyte count abnormal [None]
  - Urinary tract infection [None]
  - Hemiparesis [None]
  - Central nervous system leukaemia [None]
  - Mental status changes [None]

NARRATIVE: CASE EVENT DATE: 20220529
